FAERS Safety Report 5556762-3 (Version None)
Quarter: 2007Q4

REPORT INFORMATION
  Report Type: 
  Country: None (occurrence: None)
  Receive Date: 20071130
  Receipt Date: 20070808
  Transmission Date: 20080405
  Serious: No
  Sender: FDA-Public Use
  Company Number: 2006PV025895

PATIENT
  Age: 65 Year
  Sex: Female
  Weight: 65.8 kg

DRUGS (4)
  1. EXENATIDE(EXENATIDE) PEN,DISPOSABLE [Suspect]
     Indication: TYPE 2 DIABETES MELLITUS
     Dosage: 10 UG, 2/D, SUBCUTANEOUS
     Route: 058
     Dates: start: 20060301, end: 20070701
  2. EXENATIDE(EXENATIDE) PEN,DISPOSABLE [Suspect]
     Indication: TYPE 2 DIABETES MELLITUS
     Dosage: 10 UG, 2/D, SUBCUTANEOUS
     Route: 058
     Dates: start: 20070808
  3. ASPIRIN [Concomitant]
  4. GLUCOPHAGE XR (METFORMIN HYDROCHLORIDE) [Concomitant]

REACTIONS (5)
  - ABNORMAL DREAMS [None]
  - CONTUSION [None]
  - INJECTION SITE BRUISING [None]
  - POOR QUALITY SLEEP [None]
  - STRESS [None]
